FAERS Safety Report 15726069 (Version 1)
Quarter: 2018Q4

REPORT INFORMATION
  Report Type: Spontaneous
  Country: US (occurrence: US)
  Receive Date: 20181216
  Receipt Date: 20181216
  Transmission Date: 20190205
  Serious: Yes (Other)
  Sender: FDA-Public Use
  Company Number: US-SUPERNUS PHARMACEUTICALS, INC.-2018SUP00041

PATIENT
  Sex: Male

DRUGS (5)
  1. TOPIRAMATE. [Suspect]
     Active Substance: TOPIRAMATE
     Dosage: UNK
  2. TROKENDI XR [Suspect]
     Active Substance: TOPIRAMATE
     Dosage: 100 MG, UNK
     Dates: start: 201801
  3. TROKENDI XR [Suspect]
     Active Substance: TOPIRAMATE
     Dosage: 25 MG, UNK
     Dates: start: 201801, end: 201801
  4. TROKENDI XR [Suspect]
     Active Substance: TOPIRAMATE
     Dosage: 75 MG, UNK
     Dates: start: 201801, end: 201801
  5. TROKENDI XR [Suspect]
     Active Substance: TOPIRAMATE
     Dosage: 50 MG, UNK
     Dates: start: 201801, end: 201801

REACTIONS (5)
  - Vision blurred [Not Recovered/Not Resolved]
  - Visual impairment [Not Recovered/Not Resolved]
  - Paraesthesia [Not Recovered/Not Resolved]
  - Dysgeusia [Not Recovered/Not Resolved]
  - Memory impairment [Not Recovered/Not Resolved]

NARRATIVE: CASE EVENT DATE: 201801
